FAERS Safety Report 7597533 (Version 4)
Quarter: 2012Q4

REPORT INFORMATION
  Report Type: 
  Country: US (occurrence: US)
  Receive Date: 20100920
  Receipt Date: 20121101
  Transmission Date: 20130627
  Serious: Yes (Other)
  Sender: FDA-Public Use
  Company Number: US-ASTRAZENECA-2010SE25150

PATIENT
  Age: 53 Year
  Sex: Female
  Weight: 68 kg

DRUGS (53)
  1. SEROQUEL [Suspect]
     Indication: BIPOLAR DISORDER
     Route: 048
     Dates: start: 2005
  2. SEROQUEL [Suspect]
     Indication: POST-TRAUMATIC STRESS DISORDER
     Route: 048
     Dates: start: 2005
  3. SEROQUEL [Suspect]
     Indication: BIPOLAR I DISORDER
     Route: 048
     Dates: start: 2005
  4. SEROQUEL [Suspect]
     Indication: MANIA
     Route: 048
     Dates: start: 2005
  5. SEROQUEL [Suspect]
     Indication: BIPOLAR DISORDER
     Route: 048
     Dates: start: 2005
  6. SEROQUEL [Suspect]
     Indication: POST-TRAUMATIC STRESS DISORDER
     Route: 048
     Dates: start: 2005
  7. SEROQUEL [Suspect]
     Indication: BIPOLAR I DISORDER
     Route: 048
     Dates: start: 2005
  8. SEROQUEL [Suspect]
     Indication: MANIA
     Route: 048
     Dates: start: 2005
  9. SEROQUEL [Suspect]
     Indication: BIPOLAR DISORDER
     Dosage: 300-500 MG AT NIGHT
     Route: 048
  10. SEROQUEL [Suspect]
     Indication: POST-TRAUMATIC STRESS DISORDER
     Dosage: 300-500 MG AT NIGHT
     Route: 048
  11. SEROQUEL [Suspect]
     Indication: BIPOLAR I DISORDER
     Dosage: 300-500 MG AT NIGHT
     Route: 048
  12. SEROQUEL [Suspect]
     Indication: MANIA
     Dosage: 300-500 MG AT NIGHT
     Route: 048
  13. SEROQUEL [Suspect]
     Indication: BIPOLAR DISORDER
     Route: 048
     Dates: start: 2005
  14. SEROQUEL [Suspect]
     Indication: POST-TRAUMATIC STRESS DISORDER
     Route: 048
     Dates: start: 2005
  15. SEROQUEL [Suspect]
     Indication: BIPOLAR I DISORDER
     Route: 048
     Dates: start: 2005
  16. SEROQUEL [Suspect]
     Indication: MANIA
     Route: 048
     Dates: start: 2005
  17. SEROQUEL [Suspect]
     Indication: BIPOLAR DISORDER
     Dosage: 1 TABLET DAILY, 2-5 TABLETS AT BED TIME
     Route: 048
  18. SEROQUEL [Suspect]
     Indication: POST-TRAUMATIC STRESS DISORDER
     Dosage: 1 TABLET DAILY, 2-5 TABLETS AT BED TIME
     Route: 048
  19. SEROQUEL [Suspect]
     Indication: BIPOLAR I DISORDER
     Dosage: 1 TABLET DAILY, 2-5 TABLETS AT BED TIME
     Route: 048
  20. SEROQUEL [Suspect]
     Indication: MANIA
     Dosage: 1 TABLET DAILY, 2-5 TABLETS AT BED TIME
     Route: 048
  21. SEROQUEL [Suspect]
     Indication: BIPOLAR DISORDER
     Dosage: 1 TABLET DAILY, 3-5 TABLETS AT BED TIME
     Route: 048
  22. SEROQUEL [Suspect]
     Indication: POST-TRAUMATIC STRESS DISORDER
     Dosage: 1 TABLET DAILY, 3-5 TABLETS AT BED TIME
     Route: 048
  23. SEROQUEL [Suspect]
     Indication: BIPOLAR I DISORDER
     Dosage: 1 TABLET DAILY, 3-5 TABLETS AT BED TIME
     Route: 048
  24. SEROQUEL [Suspect]
     Indication: MANIA
     Dosage: 1 TABLET DAILY, 3-5 TABLETS AT BED TIME
     Route: 048
  25. SEROQUEL [Suspect]
     Indication: BIPOLAR DISORDER
     Route: 048
  26. SEROQUEL [Suspect]
     Indication: POST-TRAUMATIC STRESS DISORDER
     Route: 048
  27. SEROQUEL [Suspect]
     Indication: BIPOLAR I DISORDER
     Route: 048
  28. SEROQUEL [Suspect]
     Indication: MANIA
     Route: 048
  29. SEROQUEL [Suspect]
     Indication: BIPOLAR DISORDER
     Dosage: UP TO 6 TABLETS DAILY AS NEEDED
     Route: 048
  30. SEROQUEL [Suspect]
     Indication: POST-TRAUMATIC STRESS DISORDER
     Dosage: UP TO 6 TABLETS DAILY AS NEEDED
     Route: 048
  31. SEROQUEL [Suspect]
     Indication: BIPOLAR I DISORDER
     Dosage: UP TO 6 TABLETS DAILY AS NEEDED
     Route: 048
  32. SEROQUEL [Suspect]
     Indication: MANIA
     Dosage: UP TO 6 TABLETS DAILY AS NEEDED
     Route: 048
  33. SEROQUEL [Suspect]
     Indication: BIPOLAR DISORDER
     Route: 048
  34. SEROQUEL [Suspect]
     Indication: POST-TRAUMATIC STRESS DISORDER
     Route: 048
  35. SEROQUEL [Suspect]
     Indication: BIPOLAR I DISORDER
     Route: 048
  36. SEROQUEL [Suspect]
     Indication: MANIA
     Route: 048
  37. SEROQUEL [Suspect]
     Indication: BIPOLAR DISORDER
     Dosage: THREE TO FIVE TABLETS
     Route: 048
  38. SEROQUEL [Suspect]
     Indication: POST-TRAUMATIC STRESS DISORDER
     Dosage: THREE TO FIVE TABLETS
     Route: 048
  39. SEROQUEL [Suspect]
     Indication: BIPOLAR I DISORDER
     Dosage: THREE TO FIVE TABLETS
     Route: 048
  40. SEROQUEL [Suspect]
     Indication: MANIA
     Dosage: THREE TO FIVE TABLETS
     Route: 048
  41. PREVACID [Suspect]
     Route: 065
  42. XANAX [Suspect]
     Indication: ANXIETY
     Route: 048
  43. ZONISAMIDE [Concomitant]
     Indication: AFFECTIVE DISORDER
     Route: 048
  44. ZONISAMIDE [Concomitant]
     Indication: AFFECTIVE DISORDER
  45. DEPAKOTE ER [Concomitant]
     Indication: AFFECTIVE DISORDER
     Dosage: 500 MG DIALY WITH TID FREQUENCY
     Route: 048
  46. HYDROCHLOROTHIAZIDE [Concomitant]
     Indication: BLOOD PRESSURE
  47. LOTREL [Concomitant]
     Indication: BLOOD PRESSURE
     Dosage: 10-20 DAILY
  48. LOTREL [Concomitant]
     Indication: BLOOD PRESSURE
     Dosage: 5/20 MG, BID
  49. TUMS [Concomitant]
  50. LAMICTAL [Concomitant]
  51. RISPERDAL [Concomitant]
  52. VITAMIN D [Concomitant]
     Dosage: 5000 U
  53. LOPRESSOR [Concomitant]
     Indication: CARDIAC DISORDER

REACTIONS (17)
  - Hypertension [Recovered/Resolved]
  - Tooth abscess [Unknown]
  - Anxiety [Unknown]
  - Bipolar disorder [Unknown]
  - Confusional state [Unknown]
  - Hallucination [Unknown]
  - Vitamin D decreased [Unknown]
  - Mania [Unknown]
  - Amnesia [Unknown]
  - Panic attack [Unknown]
  - Tachyphrenia [Unknown]
  - Dyspepsia [Unknown]
  - Sedation [Unknown]
  - Weight increased [Unknown]
  - Increased appetite [Unknown]
  - Drug dose omission [Unknown]
  - Therapeutic response unexpected [Unknown]
